FAERS Safety Report 12734043 (Version 3)
Quarter: 2016Q4

REPORT INFORMATION
  Report Type: Spontaneous
  Country: IT (occurrence: IT)
  Receive Date: 20160912
  Receipt Date: 20161221
  Transmission Date: 20170207
  Serious: Yes (Other)
  Sender: FDA-Public Use
  Company Number: IT-ELI_LILLY_AND_COMPANY-IT201609002116

PATIENT
  Age: 72 Year
  Sex: Female

DRUGS (6)
  1. OMEPRAZEN                          /00661201/ [Concomitant]
     Active Substance: OMEPRAZOLE
  2. SAMYR                              /00882301/ [Concomitant]
     Active Substance: ADEMETIONINE
  3. TENORMIN [Concomitant]
     Active Substance: ATENOLOL
  4. TAVOR (LORAZEPAM) [Concomitant]
     Active Substance: LORAZEPAM
  5. FORSTEO [Suspect]
     Active Substance: TERIPARATIDE
     Indication: OSTEOPOROSIS
     Dosage: UNK UNK, UNKNOWN
     Route: 065
     Dates: start: 201608
  6. TAD                                /00317401/ [Concomitant]

REACTIONS (9)
  - Blood pressure increased [Unknown]
  - Dysgeusia [Unknown]
  - Arthralgia [Not Recovered/Not Resolved]
  - Abdominal distension [Unknown]
  - Hot flush [Unknown]
  - Drug ineffective [Unknown]
  - Weight increased [Unknown]
  - Swelling [Unknown]
  - Pain in extremity [Unknown]
